FAERS Safety Report 4601908-4 (Version None)
Quarter: 2005Q1

REPORT INFORMATION
  Report Type: 
  Country: None (occurrence: None)
  Receive Date: 20050131
  Receipt Date: 20041018
  Transmission Date: 20050727
  Serious: No
  Sender: FDA-Public Use
  Company Number: 200417461US

PATIENT
  Age: 30 Year
  Sex: Female
  Weight: 68.2 kg

DRUGS (1)
  1. KETEK [Suspect]
     Indication: EAR INFECTION
     Dosage: 400 MG QD PO
     Route: 048

REACTIONS (2)
  - DRUG INEFFECTIVE [None]
  - MASTOIDITIS [None]
